FAERS Safety Report 20873587 (Version 1)
Quarter: 2022Q2

REPORT INFORMATION
  Report Type: Report from Study
  Country: US (occurrence: US)
  Receive Date: 20220525
  Receipt Date: 20220525
  Transmission Date: 20220721
  Serious: Yes (Hospitalization)
  Sender: FDA-Public Use
  Company Number: US-HORIZON THERAPEUTICS-HZN-2022-003723

PATIENT

DRUGS (1)
  1. RAVICTI [Suspect]
     Active Substance: GLYCEROL PHENYLBUTYRATE
     Indication: Arginase deficiency
     Dosage: FIRST DOSE 1.1GM/ML, 4ML
     Route: 048
     Dates: start: 20191213

REACTIONS (1)
  - Metabolic disorder [Recovering/Resolving]

NARRATIVE: CASE EVENT DATE: 20220424
